FAERS Safety Report 9773099 (Version 1)
Quarter: 2013Q4

REPORT INFORMATION
  Report Type: Spontaneous
  Country: GB (occurrence: GB)
  Receive Date: 20131219
  Receipt Date: 20131219
  Transmission Date: 20140711
  Serious: Yes (Other)
  Sender: FDA-Public Use
  Company Number: PHHY2013GB146092

PATIENT
  Age: 78 Year
  Sex: Female
  Weight: 69 kg

DRUGS (12)
  1. CO-AMOXICLAV [Suspect]
  2. FUROSEMIDE [Concomitant]
     Dates: start: 20130819
  3. HYDROXYCHLOROQUINE SULFATE [Concomitant]
     Dates: start: 20130819, end: 20131127
  4. LERCANIDIPINE HYDROCHLORIDE [Concomitant]
     Dates: start: 20130819
  5. MICONAZOLE [Concomitant]
     Dates: start: 20130819
  6. PAROXETINE [Concomitant]
     Dates: start: 20130819
  7. PERINDOPRIL ERBUMINE [Concomitant]
     Dates: start: 20130819
  8. SIMVASTATIN [Concomitant]
     Dates: start: 20130819
  9. WARFARIN SODIUM [Concomitant]
     Dates: start: 20130819, end: 20131125
  10. PILOCARPINE HYDROCHLORIDE [Concomitant]
     Dates: start: 20130819
  11. METFORMIN [Concomitant]
     Dates: start: 20130909
  12. MOMETASONE [Concomitant]
     Dates: start: 20130909, end: 20131126

REACTIONS (1)
  - Malaise [Recovered/Resolved]
